FAERS Safety Report 20113106 (Version 1)
Quarter: 2021Q4

REPORT INFORMATION
  Report Type: Spontaneous
  Country: US (occurrence: None)
  Receive Date: 20211124
  Receipt Date: 20211124
  Transmission Date: 20220303
  Serious: No
  Sender: FDA-Public Use
  Company Number: None

PATIENT
  Sex: Male

DRUGS (2)
  1. LUMIGAN [Suspect]
     Active Substance: BIMATOPROST
  2. TIMOLOL [Suspect]
     Active Substance: TIMOLOL

REACTIONS (4)
  - Swelling [None]
  - Pain [None]
  - Keratitis [None]
  - Irritability [None]
